FAERS Safety Report 9137949 (Version 1)
Quarter: 2013Q1

REPORT INFORMATION
  Report Type: Spontaneous
  Country: HU (occurrence: HU)
  Receive Date: 20130304
  Receipt Date: 20130304
  Transmission Date: 20140127
  Serious: Yes (Hospitalization)
  Sender: FDA-Public Use
  Company Number: HU-ASTRAZENECA-2013SE12434

PATIENT
  Sex: Female

DRUGS (1)
  1. BETALOC ZOK [Suspect]
     Indication: SINUS TACHYCARDIA
     Route: 048

REACTIONS (1)
  - Arteriospasm coronary [Recovered/Resolved]
